FAERS Safety Report 14207826 (Version 1)
Quarter: 2017Q4

REPORT INFORMATION
  Report Type: Spontaneous
  Country: US (occurrence: None)
  Receive Date: 20171120
  Receipt Date: 20171120
  Transmission Date: 20180321
  Serious: Yes (Hospitalization)
  Sender: FDA-Public Use
  Company Number: None

PATIENT
  Age: 61 Year
  Sex: Male

DRUGS (1)
  1. CAPECITABINE 500 MG RISING [Suspect]
     Active Substance: CAPECITABINE
     Indication: PANCREATIC CARCINOMA
     Dosage: 3 TABS TWICE DAILY ORAL
     Route: 048
     Dates: start: 20171026

REACTIONS (4)
  - Oedema peripheral [None]
  - Blood count abnormal [None]
  - Swelling [None]
  - Erythema [None]

NARRATIVE: CASE EVENT DATE: 201711
